FAERS Safety Report 14007326 (Version 1)
Quarter: 2017Q3

REPORT INFORMATION
  Report Type: Spontaneous
  Country: SE (occurrence: SE)
  Receive Date: 20170925
  Receipt Date: 20170925
  Transmission Date: 20171128
  Serious: Yes (Hospitalization)
  Sender: FDA-Public Use
  Company Number: SE-ROCHE-1995519

PATIENT
  Age: 57 Year
  Sex: Female

DRUGS (4)
  1. CEFADROXIL. [Concomitant]
     Active Substance: CEFADROXIL
     Indication: SOFT TISSUE INFECTION
  2. PARACETAMOL [Concomitant]
     Active Substance: ACETAMINOPHEN
     Indication: PYREXIA
  3. RITUXIMAB. [Suspect]
     Active Substance: RITUXIMAB
     Route: 042
  4. RITUXIMAB. [Suspect]
     Active Substance: RITUXIMAB
     Indication: MULTIPLE SCLEROSIS
     Route: 042

REACTIONS (16)
  - Cardiac murmur [Recovered/Resolved]
  - Transaminases increased [Recovered/Resolved]
  - Hypoaesthesia [Recovered/Resolved]
  - Intentional product use issue [Unknown]
  - Off label use [Unknown]
  - Chills [Recovered/Resolved]
  - Pain in extremity [Recovered/Resolved]
  - Pyrexia [Unknown]
  - Pain [Recovered/Resolved]
  - Peripheral swelling [Recovered/Resolved]
  - Erythema [Recovered/Resolved]
  - Bacterial test positive [Recovered/Resolved]
  - C-reactive protein increased [Recovered/Resolved]
  - Soft tissue infection [Recovered/Resolved]
  - Fatigue [Recovered/Resolved]
  - Staphylococcus test positive [Recovered/Resolved]
